FAERS Safety Report 8235851-9 (Version None)
Quarter: 2012Q1

REPORT INFORMATION
  Report Type: 
  Country: None (occurrence: None)
  Receive Date: 20120326
  Receipt Date: 20120314
  Transmission Date: 20120608
  Serious: Yes (Hospitalization)
  Sender: FDA-Public Use
  Company Number: JP-GILEAD-2011-0046827

PATIENT
  Sex: Female

DRUGS (3)
  1. ADCIRCA [Concomitant]
     Route: 048
  2. AMBRISENTAN [Suspect]
     Indication: PULMONARY ARTERIAL HYPERTENSION
     Dosage: 2.5 MG, QD
     Route: 048
     Dates: start: 20110111, end: 20110112
  3. ADCIRCA [Concomitant]
     Route: 048

REACTIONS (1)
  - PYREXIA [None]
